FAERS Safety Report 7375112-3 (Version None)
Quarter: 2011Q1

REPORT INFORMATION
  Report Type: 
  Country: None (occurrence: None)
  Receive Date: 20110325
  Receipt Date: 20110301
  Transmission Date: 20110831
  Serious: No
  Sender: FDA-Public Use
  Company Number: US-B.I. PHARMACEUTICALS,INC./RIDGEFIELD-2011-BP-05897BP

PATIENT
  Age: 85 Year
  Sex: Female

DRUGS (4)
  1. DIGOXIN [Concomitant]
     Indication: CARDIAC DISORDER
     Dosage: 0.125 MG
     Route: 048
  2. PRADAXA [Suspect]
     Indication: ATRIAL FIBRILLATION
     Dosage: 300 MG
     Route: 048
     Dates: start: 20110201
  3. POTASSIUM CHLORIDE [Concomitant]
     Indication: OEDEMA PERIPHERAL
     Route: 048
  4. LASIX [Concomitant]
     Indication: OEDEMA PERIPHERAL
     Route: 048

REACTIONS (3)
  - ABDOMINAL PAIN UPPER [None]
  - SENSATION OF FOREIGN BODY [None]
  - NAUSEA [None]
